FAERS Safety Report 6137820-1 (Version None)
Quarter: 2009Q1

REPORT INFORMATION
  Report Type: 
  Country: None (occurrence: None)
  Receive Date: 20090331
  Receipt Date: 20090320
  Transmission Date: 20090719
  Serious: Yes (Other)
  Sender: FDA-Public Use
  Company Number: GB-AMGEN-US339708

PATIENT
  Sex: Female
  Weight: 58.2 kg

DRUGS (1)
  1. ENBREL [Suspect]
     Indication: DRUG USE FOR UNKNOWN INDICATION
     Route: 058
     Dates: start: 20081101

REACTIONS (3)
  - FALL [None]
  - HUMERUS FRACTURE [None]
  - INJECTION SITE PAIN [None]
